FAERS Safety Report 5715810-8 (Version None)
Quarter: 2008Q2

REPORT INFORMATION
  Report Type: 
  Country: None (occurrence: None)
  Receive Date: 20080424
  Receipt Date: 20080414
  Transmission Date: 20081010
  Serious: Yes (Other)
  Sender: FDA-Public Use
  Company Number: GB-ABBOTT-08P-167-0435000-00

PATIENT
  Sex: Male

DRUGS (2)
  1. EPILIM SYRUP [Suspect]
     Indication: MYOCLONUS
     Route: 048
     Dates: start: 20071101
  2. EPILIM SYRUP [Suspect]
     Route: 048

REACTIONS (3)
  - DRUG INEFFECTIVE [None]
  - MYOCLONUS [None]
  - PSYCHOMOTOR HYPERACTIVITY [None]
